FAERS Safety Report 25027725 (Version 2)
Quarter: 2025Q3

REPORT INFORMATION
  Report Type: Spontaneous
  Country: US (occurrence: US)
  Receive Date: 20250301
  Receipt Date: 20250708
  Transmission Date: 20251021
  Serious: No
  Sender: SANOFI AVENTIS
  Company Number: US-SA-2025SA057821

PATIENT
  Sex: Male

DRUGS (6)
  1. DUPIXENT [Suspect]
     Active Substance: DUPILUMAB
     Indication: Dermatitis atopic
     Dosage: 300 MG, QOW
     Route: 058
  2. DUPIXENT [Suspect]
     Active Substance: DUPILUMAB
     Indication: Dermatitis
  3. NEMLUVIO [Suspect]
     Active Substance: NEMOLIZUMAB-ILTO
  4. ATORVASTATIN [Concomitant]
     Active Substance: ATORVASTATIN
  5. HUMALOG [Concomitant]
     Active Substance: INSULIN LISPRO
  6. LOSARTAN POTASSIUM [Concomitant]
     Active Substance: LOSARTAN POTASSIUM

REACTIONS (3)
  - Arthralgia [Recovered/Resolved]
  - Rebound atopic dermatitis [Unknown]
  - Product use in unapproved indication [Unknown]
